FAERS Safety Report 13863741 (Version 2)
Quarter: 2017Q3

REPORT INFORMATION
  Report Type: Report from Study
  Country: IN (occurrence: IN)
  Receive Date: 20170814
  Receipt Date: 20170815
  Transmission Date: 20171127
  Serious: Yes (Death, Hospitalization)
  Sender: FDA-Public Use
  Company Number: PHHY2017IN119108

PATIENT
  Age: 50 Year
  Sex: Male
  Weight: 55 kg

DRUGS (1)
  1. VOTRIENT [Suspect]
     Active Substance: PAZOPANIB HYDROCHLORIDE
     Indication: METASTATIC RENAL CELL CARCINOMA
     Dosage: 400 MG, QD
     Route: 048
     Dates: start: 20170717

REACTIONS (3)
  - Metastatic renal cell carcinoma [Fatal]
  - Malignant neoplasm progression [Fatal]
  - Dyspnoea [Fatal]

NARRATIVE: CASE EVENT DATE: 201707
